FAERS Safety Report 13793529 (Version 1)
Quarter: 2017Q3

REPORT INFORMATION
  Report Type: Spontaneous
  Country: FR (occurrence: FR)
  Receive Date: 20170726
  Receipt Date: 20170726
  Transmission Date: 20171127
  Serious: Yes (Death, Other)
  Sender: FDA-Public Use
  Company Number: FR-BRISTOL-MYERS SQUIBB COMPANY-BMS-2017-063779

PATIENT
  Age: 78 Year
  Sex: Female

DRUGS (10)
  1. COUMADINE [Suspect]
     Active Substance: WARFARIN SODIUM
     Indication: ARRHYTHMIA
     Dosage: 2 MG, QD
     Route: 065
     Dates: end: 20170413
  2. TAVANIC [Suspect]
     Active Substance: LEVOFLOXACIN
     Indication: SEPSIS
     Dosage: 500 MG, QD
     Route: 065
     Dates: start: 201704, end: 20170418
  3. AMIODARONE [Concomitant]
     Active Substance: AMIODARONE
     Indication: PRODUCT USED FOR UNKNOWN INDICATION
     Dosage: 1 DF, UNK
     Route: 065
  4. SALBUTAMOL                         /00139502/ [Concomitant]
     Indication: PRODUCT USED FOR UNKNOWN INDICATION
     Dosage: 2.25 MG, UNK
     Route: 065
  5. COUMADINE [Suspect]
     Active Substance: WARFARIN SODIUM
     Indication: ATRIAL FIBRILLATION
     Route: 065
  6. LOPERAMIDE [Concomitant]
     Active Substance: LOPERAMIDE
     Indication: DIARRHOEA
     Dosage: 2 MG, UNK
     Route: 065
  7. ORBENINE [Suspect]
     Active Substance: CLOXACILLIN SODIUM
     Indication: SEPSIS
     Dosage: UNK
     Route: 042
     Dates: start: 201704, end: 20170418
  8. HEMIGOXINE [Concomitant]
     Active Substance: DIGOXIN
     Indication: PRODUCT USED FOR UNKNOWN INDICATION
     Dosage: 1 DF, UNK
     Route: 065
  9. IPRATROPIUM [Concomitant]
     Active Substance: IPRATROPIUM
     Indication: PRODUCT USED FOR UNKNOWN INDICATION
     Route: 065
  10. FUROSEMIDE. [Concomitant]
     Active Substance: FUROSEMIDE
     Indication: PRODUCT USED FOR UNKNOWN INDICATION
     Dosage: 120 MG, UNK
     Route: 065

REACTIONS (6)
  - International normalised ratio increased [Not Recovered/Not Resolved]
  - Transfusion [Unknown]
  - Accidental overdose [Not Recovered/Not Resolved]
  - Off label use [Unknown]
  - Labelled drug-drug interaction medication error [Not Recovered/Not Resolved]
  - Haematoma [Fatal]

NARRATIVE: CASE EVENT DATE: 201704
